FAERS Safety Report 13073104 (Version 1)
Quarter: 2016Q4

REPORT INFORMATION
  Report Type: Report from Study
  Country: None (occurrence: US)
  Receive Date: 20161229
  Receipt Date: 20161229
  Transmission Date: 20170207
  Serious: Yes (Hospitalization)
  Sender: FDA-Public Use
  Company Number: US-ABBVIE-16K-163-1773611-00

PATIENT
  Age: 73 Year
  Sex: Male
  Weight: 55.39 kg

DRUGS (1)
  1. HUMIRA [Suspect]
     Active Substance: ADALIMUMAB
     Indication: RHEUMATOID ARTHRITIS
     Route: 058
     Dates: start: 201607, end: 201608

REACTIONS (5)
  - Benign neoplasm of prostate [Recovering/Resolving]
  - Urinary incontinence [Recovering/Resolving]
  - Weight decreased [Recovering/Resolving]
  - Injection site pain [Not Recovered/Not Resolved]
  - Post procedural urine leak [Recovering/Resolving]

NARRATIVE: CASE EVENT DATE: 2016
